FAERS Safety Report 4822363-5 (Version None)
Quarter: 2005Q4

REPORT INFORMATION
  Report Type: 
  Country: None (occurrence: None)
  Receive Date: 20051104
  Receipt Date: 20051021
  Transmission Date: 20060501
  Serious: Yes (Hospitalization)
  Sender: FDA-Public Use
  Company Number: B0398384A

PATIENT
  Age: 48 Year
  Sex: Male

DRUGS (2)
  1. COMBIVIR [Suspect]
     Indication: HIV INFECTION
     Dosage: 450 MG TWICE PER DAY ORAL
     Route: 048
     Dates: start: 20040101
  2. ATAZANAVIR (FORMULATION UNKNOWN) (ATAZANAVIR) [Suspect]
     Indication: HIV INFECTION
     Dosage: 400 MG TWICE PER DAY ORAL
     Route: 048
     Dates: start: 20040101

REACTIONS (11)
  - BLOOD LACTIC ACID INCREASED [None]
  - BUNDLE BRANCH BLOCK LEFT [None]
  - CARDIAC FAILURE [None]
  - CARDIOMEGALY [None]
  - CONGESTIVE CARDIOMYOPATHY [None]
  - DYSPNOEA EXERTIONAL [None]
  - EJECTION FRACTION DECREASED [None]
  - GENERAL PHYSICAL CONDITION ABNORMAL [None]
  - MYOCARDIAL FIBROSIS [None]
  - OEDEMA PERIPHERAL [None]
  - VENTRICULAR DYSFUNCTION [None]
